FAERS Safety Report 5908635-1 (Version None)
Quarter: 2008Q4

REPORT INFORMATION
  Report Type: 
  Country: None (occurrence: None)
  Receive Date: 20081001
  Receipt Date: 20080922
  Transmission Date: 20090506
  Serious: Yes (Other)
  Sender: FDA-Public Use
  Company Number: 2008AP001804

PATIENT
  Age: 67 Year
  Sex: Female

DRUGS (12)
  1. ZOLPIDEM TARTRATE [Suspect]
     Indication: INSOMNIA
     Dosage: 10 MG; QD; PO
     Route: 048
  2. CLONAZEPAM [Concomitant]
  3. ZOLPIDEM TARTRATE [Concomitant]
  4. INSULIN HUMAN INJECTION [Concomitant]
  5. ISOPHANE [Concomitant]
  6. FUROSEMIDE POTASSIUM CHLORIDE [Concomitant]
  7. LISINOPRIL [Concomitant]
  8. LEVOTHYROXINE SODIUM [Concomitant]
  9. DOCUSATE SODIUM [Concomitant]
  10. SENNA [Concomitant]
  11. ACETYLSALICYLIC ACID SRT [Concomitant]
  12. GABAPENTIN [Concomitant]

REACTIONS (12)
  - AMNESIA [None]
  - ASTHENIA [None]
  - FATIGUE [None]
  - HUNGER [None]
  - HYPERSENSITIVITY [None]
  - INCREASED APPETITE [None]
  - IRRITABILITY [None]
  - POOR QUALITY SLEEP [None]
  - PRODUCT QUALITY ISSUE [None]
  - PRURITUS [None]
  - SUICIDAL IDEATION [None]
  - THERAPEUTIC RESPONSE DECREASED [None]
